FAERS Safety Report 11277478 (Version 1)
Quarter: 2015Q3

REPORT INFORMATION
  Report Type: Spontaneous
  Country: SE (occurrence: SE)
  Receive Date: 20150716
  Receipt Date: 20150716
  Transmission Date: 20151125
  Serious: Yes (Hospitalization, Congenital Anomaly)
  Sender: FDA-Public Use
  Company Number: SE-TEVA-578216ISR

PATIENT
  Sex: Male

DRUGS (1)
  1. VENLAFAXINE [Suspect]
     Active Substance: VENLAFAXINE HYDROCHLORIDE
     Route: 064

REACTIONS (3)
  - Foetal exposure during pregnancy [Unknown]
  - Oxygen saturation abnormal [Not Recovered/Not Resolved]
  - Persistent foetal circulation [Not Recovered/Not Resolved]
